FAERS Safety Report 23877679 (Version 1)
Quarter: 2024Q2

REPORT INFORMATION
  Report Type: Spontaneous
  Country: GB (occurrence: GB)
  Receive Date: 20240521
  Receipt Date: 20240521
  Transmission Date: 20240716
  Serious: Yes (Death, Hospitalization, Other)
  Sender: FDA-Public Use
  Company Number: GB-GERMAN-LIT/GBR/24/0007099

PATIENT
  Age: 61 Year
  Sex: Male

DRUGS (9)
  1. VORICONAZOLE [Suspect]
     Active Substance: VORICONAZOLE
     Indication: Neutropenic sepsis
  2. VORICONAZOLE [Suspect]
     Active Substance: VORICONAZOLE
     Indication: Prophylaxis
  3. POSACONAZOLE [Suspect]
     Active Substance: POSACONAZOLE
     Indication: Neutropenic sepsis
  4. POSACONAZOLE [Suspect]
     Active Substance: POSACONAZOLE
     Indication: Prophylaxis
  5. ISAVUCONAZOLE [Suspect]
     Active Substance: ISAVUCONAZOLE
     Indication: Fungal infection
     Dosage: LOADING DOSE OF 200 MG I.V. THREE TIMES/DAY FOR THE FIRST 48 H FOLLOWED BY A MAINTENANCE DOSE OF 200
     Route: 042
  6. ISAVUCONAZOLE [Suspect]
     Active Substance: ISAVUCONAZOLE
     Dosage: MAINTENANCE DOSE OF 200 MG ONCE DAILY
  7. AMPHOTERICIN B [Suspect]
     Active Substance: AMPHOTERICIN B
     Indication: Fungal infection
     Route: 042
  8. PIPERACILLIN SODIUM\TAZOBACTAM SODIUM [Concomitant]
     Active Substance: PIPERACILLIN SODIUM\TAZOBACTAM SODIUM
     Indication: Neutropenic sepsis
     Dosage: FOUR TIMES/DAY
     Route: 042
  9. COTRIMOXAZOLE [Concomitant]
     Active Substance: SULFAMETHOXAZOLE\TRIMETHOPRIM
     Indication: Pneumocystis jirovecii infection

REACTIONS (8)
  - Drug ineffective for unapproved indication [Fatal]
  - Disease progression [Fatal]
  - Pneumocystis jirovecii infection [Unknown]
  - Rash maculo-papular [Unknown]
  - Acute kidney injury [Unknown]
  - Respiratory failure [Unknown]
  - Pleural effusion [Unknown]
  - Retinal injury [Unknown]
